FAERS Safety Report 24196695 (Version 1)
Quarter: 2024Q3

REPORT INFORMATION
  Report Type: Report from Study
  Country: BR (occurrence: BR)
  Receive Date: 20240810
  Receipt Date: 20240810
  Transmission Date: 20241017
  Serious: Yes (Disabling)
  Sender: ABBVIE
  Company Number: BR-ABBVIE-5871822

PATIENT
  Age: 42 Year
  Sex: Male
  Weight: 69 kg

DRUGS (2)
  1. SKYRIZI [Suspect]
     Active Substance: RISANKIZUMAB-RZAA
     Indication: Psoriasis
     Dosage: 2 PENS
     Route: 058
     Dates: start: 20240412, end: 20240412
  2. SKYRIZI [Suspect]
     Active Substance: RISANKIZUMAB-RZAA
     Dosage: 2 PENS
     Route: 058
     Dates: start: 20240512

REACTIONS (3)
  - Gait inability [Recovering/Resolving]
  - Skeletal injury [Recovering/Resolving]
  - Accident at home [Recovering/Resolving]

NARRATIVE: CASE EVENT DATE: 20240523
